FAERS Safety Report 15265166 (Version 1)
Quarter: 2018Q3

REPORT INFORMATION
  Report Type: Report from Study
  Country: JP (occurrence: JP)
  Receive Date: 20180810
  Receipt Date: 20180810
  Transmission Date: 20181010
  Serious: Yes (Hospitalization)
  Sender: FDA-Public Use
  Company Number: PHHY2017JP204540

PATIENT
  Age: 44 Year
  Sex: Female
  Weight: 39.45 kg

DRUGS (26)
  1. METHOTREXATE. [Suspect]
     Active Substance: METHOTREXATE
     Indication: PSORIASIS
     Dosage: 10 MG, UNK
     Route: 048
  2. METHOTREXATE. [Suspect]
     Active Substance: METHOTREXATE
     Dosage: 7.5 MG, UNK
     Route: 048
     Dates: start: 20160825, end: 20160923
  3. ETRETINATE [Concomitant]
     Active Substance: ETRETINATE
     Indication: PSORIASIS
     Dosage: 60 MG, UNK
     Route: 048
  4. CALONAL [Concomitant]
     Active Substance: ACETAMINOPHEN
     Indication: PSORIASIS
     Dosage: 2400 MG, UNK
     Route: 048
  5. PARIET [Concomitant]
     Active Substance: RABEPRAZOLE SODIUM
     Indication: PROPHYLAXIS
     Dosage: 10 MG, UNK
     Route: 048
  6. NOVAMIN [Concomitant]
     Indication: NAUSEA
     Dosage: 15 MG, UNK
     Route: 048
  7. MAGMITT [Concomitant]
     Active Substance: MAGNESIUM OXIDE
     Indication: CONSTIPATION
     Dosage: 990 MG, UNK
     Route: 048
  8. AZULFIDINE [Suspect]
     Active Substance: SULFASALAZINE
     Indication: PSORIASIS
     Dosage: 500 MG, QD
     Route: 048
     Dates: start: 20160310, end: 20160407
  9. LOXONIN [Concomitant]
     Active Substance: LOXOPROFEN SODIUM
     Indication: PSORIASIS
     Dosage: 120 MG, UNK
     Route: 048
  10. FOLIAMIN [Concomitant]
     Active Substance: FOLIC ACID
     Indication: PROPHYLAXIS
     Dosage: 1 DF, UNK
     Route: 048
     Dates: start: 20161215
  11. COSENTYX [Suspect]
     Active Substance: SECUKINUMAB
     Indication: PSORIATIC ARTHROPATHY
     Dosage: 300 MG, QW
     Route: 058
     Dates: start: 20151022, end: 20151119
  12. COSENTYX [Suspect]
     Active Substance: SECUKINUMAB
     Dosage: 300 MG, 4W
     Route: 058
     Dates: start: 20160602, end: 20160929
  13. EDIROL [Concomitant]
     Active Substance: ELDECALCITOL
     Indication: OSTEOPOROSIS
     Dosage: 0.5 UG, UNK
     Route: 048
  14. PROGRAF [Concomitant]
     Active Substance: TACROLIMUS\TACROLIMUS ANHYDROUS
     Indication: PRODUCT USED FOR UNKNOWN INDICATION
     Dosage: 2 MG, UNK
     Route: 048
     Dates: start: 20160908
  15. BAKTAR [Concomitant]
     Active Substance: SULFAMETHOXAZOLE\TRIMETHOPRIM
     Indication: PROPHYLAXIS
     Dosage: 2 DF, UNK
     Route: 048
  16. PREDNISOLONE. [Concomitant]
     Active Substance: PREDNISOLONE
     Indication: PSORIASIS
     Dosage: 5 MG, UNK
     Route: 048
  17. SOKEIKAKKETSUTO [Concomitant]
     Indication: PRODUCT USED FOR UNKNOWN INDICATION
     Dosage: 7.5 MG, UNK
     Route: 048
  18. AZEPTIN [Concomitant]
     Active Substance: AZELASTINE HYDROCHLORIDE
     Indication: PRODUCT USED FOR UNKNOWN INDICATION
     Dosage: 3 MG, UNK
     Route: 048
  19. COSENTYX [Suspect]
     Active Substance: SECUKINUMAB
     Dosage: 300 MG, 4W
     Route: 058
     Dates: start: 20151217, end: 20160407
  20. METHOTREXATE. [Suspect]
     Active Substance: METHOTREXATE
     Dosage: 12.5 MG, UNK
     Route: 048
     Dates: end: 20160506
  21. METHOTREXATE. [Suspect]
     Active Substance: METHOTREXATE
     Dosage: 11.25 MG, UNK
     Route: 048
     Dates: start: 20160506, end: 20160825
  22. MORPHINE [Concomitant]
     Active Substance: MORPHINE
     Indication: PSORIASIS
     Dosage: 90 MG, UNK
     Route: 048
  23. BONALON [Concomitant]
     Active Substance: ALENDRONATE SODIUM
     Indication: OSTEOPOROSIS
     Dosage: 35 MG, QW
     Route: 048
  24. SEROQUEL [Concomitant]
     Active Substance: QUETIAPINE FUMARATE
     Indication: INSOMNIA
     Dosage: 50 MG, UNK
     Route: 048
  25. ROHYPNOL [Concomitant]
     Active Substance: FLUNITRAZEPAM
     Indication: INSOMNIA
     Dosage: 2 MG, UNK
     Route: 048
  26. ALLELOCK [Concomitant]
     Active Substance: OLOPATADINE HYDROCHLORIDE
     Indication: PRODUCT USED FOR UNKNOWN INDICATION
     Dosage: 10 MG, UNK
     Route: 048

REACTIONS (7)
  - Platelet count increased [Unknown]
  - Skin erosion [Recovering/Resolving]
  - Neutropenia [Unknown]
  - Febrile neutropenia [Recovering/Resolving]
  - Anaemia [Unknown]
  - Leukopenia [Unknown]
  - Liver disorder [Recovering/Resolving]

NARRATIVE: CASE EVENT DATE: 20160407
